FAERS Safety Report 6254131-4 (Version None)
Quarter: 2009Q3

REPORT INFORMATION
  Report Type: 
  Country: None (occurrence: None)
  Receive Date: 20090702
  Receipt Date: 20090629
  Transmission Date: 20100115
  Serious: Yes (Hospitalization)
  Sender: FDA-Public Use
  Company Number: FR-WYE-G03945109

PATIENT
  Sex: Male
  Weight: 70 kg

DRUGS (8)
  1. TAZOCILLINE [Suspect]
     Indication: TRAUMATIC ARTHRITIS
     Dosage: UNKNOWN
     Route: 042
     Dates: start: 20090514, end: 20090525
  2. TAZOCILLINE [Suspect]
     Indication: ARTHRITIS BACTERIAL
  3. CIFLOX [Suspect]
     Indication: TRAUMATIC ARTHRITIS
     Dosage: UNKNOWN
     Route: 042
     Dates: start: 20090514, end: 20090525
  4. CIFLOX [Suspect]
     Indication: ARTHRITIS BACTERIAL
  5. VANCOMYCIN [Suspect]
     Indication: TRAUMATIC ARTHRITIS
     Route: 042
     Dates: start: 20090514, end: 20090525
  6. VANCOMYCIN [Suspect]
     Indication: ARTHRITIS BACTERIAL
  7. FUCIDINE [Suspect]
     Indication: TRAUMATIC ARTHRITIS
     Dosage: UNKNOWN
     Route: 042
     Dates: start: 20090514, end: 20090525
  8. FUCIDINE [Suspect]
     Indication: ARTHRITIS BACTERIAL

REACTIONS (6)
  - AGRANULOCYTOSIS [None]
  - DRUG RASH WITH EOSINOPHILIA AND SYSTEMIC SYMPTOMS [None]
  - HAEMOGLOBIN DECREASED [None]
  - PLATELET COUNT DECREASED [None]
  - SKIN EXFOLIATION [None]
  - TACHYCARDIA [None]
